FAERS Safety Report 9471905 (Version 1)
Quarter: 2013Q3

REPORT INFORMATION
  Report Type: Report from Study
  Country: CO (occurrence: CO)
  Receive Date: 20130823
  Receipt Date: 20130823
  Transmission Date: 20140515
  Serious: Yes (Hospitalization)
  Sender: FDA-Public Use
  Company Number: CO-ROCHE-1265145

PATIENT
  Age: 45 Year
  Sex: Male

DRUGS (1)
  1. CELLCEPT [Suspect]
     Indication: HEART TRANSPLANT
     Route: 048
     Dates: start: 20060905

REACTIONS (1)
  - Heart transplant rejection [Recovered/Resolved]
